FAERS Safety Report 5405085-1 (Version None)
Quarter: 2007Q3

REPORT INFORMATION
  Report Type: 
  Country: None (occurrence: None)
  Receive Date: 20070803
  Receipt Date: 20070725
  Transmission Date: 20080115
  Serious: Yes (Other)
  Sender: FDA-Public Use
  Company Number: GB-ROCHE-496937

PATIENT
  Age: 57 Year
  Sex: Male
  Weight: 109.8 kg

DRUGS (6)
  1. XENICAL [Suspect]
     Indication: OBESITY
     Route: 048
     Dates: start: 20061017
  2. PROCHLORPERAZINE [Concomitant]
  3. RANITIDINE [Concomitant]
  4. QUININE [Concomitant]
  5. FUROSEMIDE INTENSOL [Concomitant]
  6. UNSPECIFIED DRUG [Concomitant]
     Route: 055

REACTIONS (2)
  - FEELING OF DESPAIR [None]
  - SUICIDAL IDEATION [None]
